FAERS Safety Report 8613348-1 (Version None)
Quarter: 2012Q3

REPORT INFORMATION
  Report Type: 
  Country: None (occurrence: None)
  Receive Date: 20120822
  Receipt Date: 20120806
  Transmission Date: 20120928
  Serious: Yes (Hospitalization, Other)
  Sender: FDA-Public Use
  Company Number: US-009507513-1110USA03426

PATIENT

DRUGS (11)
  1. FOSAMAX [Suspect]
     Indication: OSTEOPOROSIS
  2. FOSAMAX PLUS D [Suspect]
     Indication: OSTEOPOROSIS
     Dosage: 70 MG, QW
     Route: 048
     Dates: start: 20050401, end: 20100101
  3. CALCIUM (UNSPECIFIED) [Concomitant]
     Dosage: UNK, BID
     Dates: start: 19970101
  4. NIFEDIPINE [Concomitant]
     Indication: HYPERTENSION
     Dosage: UNK
     Dates: start: 20041001, end: 20070101
  5. HORMONES (UNSPECIFIED) [Concomitant]
     Dosage: UNK
     Dates: start: 19970101
  6. FOSAMAX [Suspect]
     Indication: OSTEOPENIA
     Dosage: 70 MG, QW
     Route: 048
     Dates: start: 19970901, end: 20050401
  7. SYNTHROID [Concomitant]
     Indication: THYROID DISORDER
     Dosage: UNK
     Dates: start: 19970101, end: 20040701
  8. ATENOLOL [Concomitant]
     Indication: HYPERTENSION
     Dosage: UNK
     Dates: start: 20040701, end: 20060801
  9. ONE-A-DAY ESSENTIAL VITAMINS [Concomitant]
     Dosage: UNK UNK, QD
     Dates: start: 19700101
  10. HYDROCHLOROTHIAZIDE [Concomitant]
     Indication: THYROID DISORDER
     Dosage: UNK
     Dates: start: 20010801, end: 20061101
  11. QUINAPRIL HYDROCHLORIDE [Concomitant]
     Indication: HYPERTENSION
     Dosage: UNK
     Dates: start: 20050201, end: 20080601

REACTIONS (4)
  - FRACTURE DELAYED UNION [None]
  - FEMUR FRACTURE [None]
  - NEPHROPATHY [None]
  - UPPER LIMB FRACTURE [None]
